FAERS Safety Report 4644557-4 (Version None)
Quarter: 2005Q2

REPORT INFORMATION
  Report Type: 
  Country: None (occurrence: None)
  Receive Date: 20050422
  Receipt Date: 20050411
  Transmission Date: 20051028
  Serious: Yes (Hospitalization)
  Sender: FDA-Public Use
  Company Number: CA-SHR-04-021840

PATIENT
  Age: 46 Year
  Sex: Female

DRUGS (26)
  1. BETASERON [Suspect]
     Indication: MULTIPLE SCLEROSIS
     Dosage: 8 MIU, EVERY 2D, SUBCUTANEOUS
     Route: 058
     Dates: start: 19960203
  2. THEO-DUR [Suspect]
     Dosage: 300 MG, 2X/DAY
     Dates: end: 20040201
  3. PREVACID [Concomitant]
  4. TOPAMAX [Concomitant]
  5. LASIX (FUROSEMDIE SODIUM) [Concomitant]
  6. GRAVOL TAB [Concomitant]
  7. VENTOLIN HFA [Concomitant]
  8. ESTRADOT [Concomitant]
  9. ATROVENT [Concomitant]
  10. VITAMIN D NOS (VITAMIN D NOS) [Concomitant]
  11. ZANAFLEX [Concomitant]
  12. PROPULSID [Concomitant]
  13. VITAMIN B-12 [Concomitant]
  14. COLACE (DOCUSATE SODIUM) [Concomitant]
  15. ACTONEL [Concomitant]
  16. SENOKOT [Concomitant]
  17. SLOW-K [Concomitant]
  18. SYNTHROID [Concomitant]
  19. HYDROCORTISON [Concomitant]
  20. SEROQUEL [Concomitant]
  21. TEMAZEPAM [Concomitant]
  22. LORAZEPAM [Concomitant]
  23. CLONAZEPAM [Concomitant]
  24. ADVAIR DISKUS (FLUTICASONE PROPIONATE, SALMETEROL XINAFOATE) [Concomitant]
  25. SINGULAIR ^MERCK^ (MONTELUKAST SODIUM) [Concomitant]
  26. MIACALCIN [Concomitant]

REACTIONS (5)
  - CONDITION AGGRAVATED [None]
  - CONVULSION [None]
  - DRUG TOXICITY [None]
  - MULTIPLE SCLEROSIS [None]
  - TOXIC SHOCK SYNDROME [None]
